FAERS Safety Report 15335495 (Version 2)
Quarter: 2018Q3

REPORT INFORMATION
  Report Type: Spontaneous
  Country: US (occurrence: US)
  Receive Date: 20180830
  Receipt Date: 20180906
  Transmission Date: 20181010
  Serious: Yes (Life-Threatening, Hospitalization, Other)
  Sender: FDA-Public Use
  Company Number: US-ASTRAZENECA-2018SF08663

PATIENT
  Age: 24063 Day
  Sex: Female
  Weight: 56 kg

DRUGS (1)
  1. IMFINZI [Suspect]
     Active Substance: DURVALUMAB
     Indication: ILL-DEFINED DISORDER
     Route: 042

REACTIONS (4)
  - Thyroiditis [Not Recovered/Not Resolved]
  - Multiple organ dysfunction syndrome [Unknown]
  - Hypothyroidism [Unknown]
  - Hepatitis [Unknown]

NARRATIVE: CASE EVENT DATE: 20180822
